FAERS Safety Report 4711587-3 (Version None)
Quarter: 2005Q3

REPORT INFORMATION
  Report Type: 
  Country: None (occurrence: None)
  Receive Date: 20050706
  Receipt Date: 20050324
  Transmission Date: 20060218
  Serious: No
  Sender: FDA-Public Use
  Company Number: US122892

PATIENT

DRUGS (1)
  1. SENSIPAR [Suspect]
     Indication: HYPERPARATHYROIDISM SECONDARY

REACTIONS (1)
  - RASH [None]
